FAERS Safety Report 24218605 (Version 2)
Quarter: 2024Q3

REPORT INFORMATION
  Report Type: Spontaneous
  Country: IT (occurrence: IT)
  Receive Date: 20240816
  Receipt Date: 20240919
  Transmission Date: 20241016
  Serious: Yes (Other)
  Sender: PFIZER
  Company Number: IT-ROCHE-3564088

PATIENT
  Age: 72 Year
  Sex: Male
  Weight: 75 kg

DRUGS (13)
  1. BEVACIZUMAB [Suspect]
     Active Substance: BEVACIZUMAB
     Indication: Hepatocellular carcinoma
     Dosage: 1155 MG, EVERY 3 WEEKS
     Route: 042
     Dates: start: 20240304
  2. BEVACIZUMAB [Suspect]
     Active Substance: BEVACIZUMAB
     Dosage: 1155 MG, EVERY 3 WEEKS
     Route: 042
     Dates: start: 20240415
  3. ATEZOLIZUMAB [Suspect]
     Active Substance: ATEZOLIZUMAB
     Indication: Hepatocellular carcinoma
     Dosage: 1200 MG, EVERY 3 WEEKS
     Route: 042
     Dates: start: 20240304
  4. ATEZOLIZUMAB [Suspect]
     Active Substance: ATEZOLIZUMAB
     Dosage: 1200 MG, EVERY 3 WEEKS
     Route: 042
     Dates: start: 20240415
  5. TIRAGOLUMAB [Suspect]
     Active Substance: TIRAGOLUMAB
     Indication: Hepatocellular carcinoma
     Dosage: 600 MG, EVERY 3 WEEKS
     Route: 042
     Dates: start: 20240304
  6. TIRAGOLUMAB [Suspect]
     Active Substance: TIRAGOLUMAB
     Dosage: 600 MG, EVERY 3 WEEKS
     Route: 042
     Dates: start: 20240415
  7. GENTALYN BETA [Concomitant]
     Indication: Rash
     Dosage: 0.1 %
     Dates: start: 20240503, end: 20240524
  8. CARVEDILOL [Concomitant]
     Active Substance: CARVEDILOL
     Indication: Hypertension
     Dosage: 6.25 MG, FREQ:3 D
     Route: 048
  9. 2^,4^,5^,7^- TETRABROMOFLUORESCEIN [Concomitant]
     Active Substance: 2^,4^,5^,7^- TETRABROMOFLUORESCEIN
     Indication: Rash
     Dosage: 1 %
     Route: 061
     Dates: start: 20240524
  10. LAMIVUDINE [Concomitant]
     Active Substance: LAMIVUDINE
     Dosage: 100 MG, 1X/DAY
     Route: 048
     Dates: start: 20240216
  11. RAMIPRIL [Concomitant]
     Active Substance: RAMIPRIL
     Dosage: 2.5 MG, 1X/DAY
     Route: 048
     Dates: start: 20240217
  12. ROSUVASTATIN [Concomitant]
     Active Substance: ROSUVASTATIN\ROSUVASTATIN CALCIUM
     Indication: Hypercholesterolaemia
     Dosage: 10 MG, 1X/DAY
     Route: 048
  13. AMUKINE MED [Concomitant]
     Dosage: 0.05 %
     Dates: start: 20240503, end: 20240524

REACTIONS (2)
  - Hyperthyroidism [Recovered/Resolved]
  - Off label use [Unknown]

NARRATIVE: CASE EVENT DATE: 20240304
